FAERS Safety Report 14298397 (Version 1)
Quarter: 2017Q4

REPORT INFORMATION
  Report Type: Spontaneous
  Country: US (occurrence: US)
  Receive Date: 20171218
  Receipt Date: 20171218
  Transmission Date: 20180321
  Serious: Yes (Other)
  Sender: FDA-Public Use
  Company Number: PHEH2017US040236

PATIENT

DRUGS (1)
  1. JADENU [Suspect]
     Active Substance: DEFERASIROX
     Indication: THALASSAEMIA BETA
     Dosage: QD
     Route: 048

REACTIONS (3)
  - Magnesium metabolism disorder [Unknown]
  - Phosphorus metabolism disorder [Unknown]
  - Metabolic acidosis [Unknown]
